FAERS Safety Report 7802542-5 (Version None)
Quarter: 2011Q4

REPORT INFORMATION
  Report Type: 
  Country: None (occurrence: None)
  Receive Date: 20111007
  Receipt Date: 20110927
  Transmission Date: 20120403
  Serious: Yes (Hospitalization)
  Sender: FDA-Public Use
  Company Number: US-ROCHE-797144

PATIENT
  Sex: Male
  Weight: 71.278 kg

DRUGS (5)
  1. FLUOROURACIL [Concomitant]
     Indication: COLORECTAL CANCER METASTATIC
  2. OXALIPLATIN [Concomitant]
     Indication: COLORECTAL CANCER METASTATIC
  3. LEUCOVORIN CALCIUM [Concomitant]
     Indication: COLORECTAL CANCER METASTATIC
  4. AVASTIN [Suspect]
     Indication: COLORECTAL CANCER METASTATIC
     Dosage: 2 DOSES
     Route: 041
  5. NEURONTIN [Concomitant]

REACTIONS (7)
  - SWELLING [None]
  - JOINT SWELLING [None]
  - PYREXIA [None]
  - NEUROPATHY PERIPHERAL [None]
  - ASTHENIA [None]
  - PAIN [None]
  - ARTHRALGIA [None]
